FAERS Safety Report 13597249 (Version 1)
Quarter: 2017Q2

REPORT INFORMATION
  Report Type: Report from Study
  Country: US (occurrence: US)
  Receive Date: 20170531
  Receipt Date: 20170531
  Transmission Date: 20170830
  Serious: Yes (Hospitalization)
  Sender: FDA-Public Use
  Company Number: US-CELGENEUS-USA-2016087232

PATIENT
  Age: 74 Year
  Sex: Male
  Weight: 61 kg

DRUGS (11)
  1. CARBOPLATIN. [Suspect]
     Active Substance: CARBOPLATIN
     Indication: NON-SMALL CELL LUNG CANCER
     Dosage: 6 MG
     Route: 041
     Dates: start: 20160527, end: 20160610
  2. CARBOPLATIN. [Suspect]
     Active Substance: CARBOPLATIN
     Dosage: 6 MG
     Route: 041
     Dates: start: 20160722, end: 20160808
  3. MIDORINE [Concomitant]
     Active Substance: MIDODRINE
     Indication: HYPOTENSION
     Dosage: 15 MG
     Route: 048
     Dates: start: 20160822
  4. ABRAXANE [Suspect]
     Active Substance: PACLITAXEL
     Dosage: 100 MG/M2
     Route: 041
     Dates: start: 20160722, end: 20160808
  5. ABRAXANE [Suspect]
     Active Substance: PACLITAXEL
     Dosage: 75 MG/M2
     Route: 041
     Dates: start: 20160722, end: 20160808
  6. LOMOTIL [Concomitant]
     Active Substance: ATROPINE SULFATE\DIPHENOXYLATE HYDROCHLORIDE
     Indication: DIARRHOEA
     Dosage: 1 TABLET
     Route: 048
     Dates: start: 2005
  7. REMERON [Concomitant]
     Active Substance: MIRTAZAPINE
     Indication: DECREASED APPETITE
     Dosage: 15 MG
     Route: 048
     Dates: start: 20160722, end: 20160822
  8. ABRAXANE [Suspect]
     Active Substance: PACLITAXEL
     Indication: NON-SMALL CELL LUNG CANCER
     Dosage: 100 MG/M2
     Route: 041
     Dates: start: 20160527, end: 20160610
  9. POTASSIUM CHLORIDE. [Concomitant]
     Active Substance: POTASSIUM CHLORIDE
     Indication: HYPOKALAEMIA
     Dosage: 60 MEQ
     Route: 048
     Dates: start: 20160708
  10. ONDANSETRON [Concomitant]
     Active Substance: ONDANSETRON
     Indication: NAUSEA
     Dosage: 8 MG
     Route: 048
     Dates: start: 20160604
  11. ONDANSETRON [Concomitant]
     Active Substance: ONDANSETRON
     Indication: PROPHYLAXIS

REACTIONS (1)
  - Ileus [Recovered/Resolved]

NARRATIVE: CASE EVENT DATE: 20160823
